FAERS Safety Report 10589580 (Version 1)
Quarter: 2014Q4

REPORT INFORMATION
  Report Type: Spontaneous
  Country: US (occurrence: None)
  Receive Date: 20141114
  Receipt Date: 20141114
  Transmission Date: 20150529
  Serious: Yes (Hospitalization)
  Sender: FDA-Public Use
  Company Number: IMP_08136_2014

PATIENT
  Age: 54 Year
  Sex: Male

DRUGS (3)
  1. OXYCODONE [Suspect]
     Active Substance: OXYCODONE
     Indication: PRODUCT USED FOR UNKNOWN INDICATION
  2. ALPRAZOLAM. [Suspect]
     Active Substance: ALPRAZOLAM
     Indication: PRODUCT USED FOR UNKNOWN INDICATION
     Dosage: NOT USUAL DOSE
  3. COCAINE [Suspect]
     Active Substance: COCAINE
     Indication: PRODUCT USED FOR UNKNOWN INDICATION

REACTIONS (13)
  - Drug abuse [None]
  - Leukoencephalopathy [None]
  - Overdose [None]
  - Acidosis [None]
  - Language disorder [None]
  - Demyelination [None]
  - Unresponsive to stimuli [None]
  - Pneumonia aspiration [None]
  - Agitation [None]
  - Somnolence [None]
  - Hypoxia [None]
  - Respiratory arrest [None]
  - Disorientation [None]
